FAERS Safety Report 6335303-7 (Version None)
Quarter: 2009Q3

REPORT INFORMATION
  Report Type: 
  Country: None (occurrence: None)
  Receive Date: 20090827
  Receipt Date: 20090813
  Transmission Date: 20100115
  Serious: Yes (Death, Life-Threatening)
  Sender: FDA-Public Use
  Company Number: 1000008358

PATIENT
  Age: 56 Year
  Sex: Male

DRUGS (9)
  1. ESCITALOPRAM [Suspect]
     Indication: MAJOR DEPRESSION
     Dosage: 1 DOSAGE FORMS (1 DOSAGE FORMS, 1 IN 1 D), ORAL
     Route: 048
     Dates: start: 20070101, end: 20070101
  2. PNEUMOREL (SYRUP) [Concomitant]
  3. BIOCALYPTOL (SYRUP) [Concomitant]
  4. ANTARENE (TABLETS) [Concomitant]
  5. RHINOFLUIMUCIL [Concomitant]
  6. NOCTRAN [Concomitant]
  7. TEMESTA [Concomitant]
  8. CELESTENE [Concomitant]
  9. THIOVALONE [Concomitant]

REACTIONS (23)
  - ABNORMAL BEHAVIOUR [None]
  - ALVEOLITIS [None]
  - ASPIRATION [None]
  - BLOOD CALCIUM DECREASED [None]
  - BLOOD CHLORIDE DECREASED [None]
  - CARDIOGENIC SHOCK [None]
  - CHOLESTASIS [None]
  - COMA [None]
  - CONVULSION [None]
  - DISORIENTATION [None]
  - DISTURBANCE IN ATTENTION [None]
  - FALL [None]
  - HAEMOGLOBIN DECREASED [None]
  - HEPATIC STEATOSIS [None]
  - HISTIOCYTOSIS HAEMATOPHAGIC [None]
  - HYPONATRAEMIA [None]
  - INTERSTITIAL LUNG DISEASE [None]
  - LUNG DISORDER [None]
  - PANCYTOPENIA [None]
  - PLEURAL NEOPLASM [None]
  - PROTEINURIA [None]
  - SINUS TACHYCARDIA [None]
  - URINARY INCONTINENCE [None]
